FAERS Safety Report 10073709 (Version 5)
Quarter: 2014Q2

REPORT INFORMATION
  Report Type: Report from Study
  Country: BE (occurrence: BE)
  Receive Date: 20140411
  Receipt Date: 20140626
  Transmission Date: 20141212
  Serious: Yes (Other)
  Sender: FDA-Public Use
  Company Number: BE-009507513-1403BEL000170

PATIENT
  Age: 62 Year
  Sex: Female
  Weight: 81.6 kg

DRUGS (8)
  1. BOCEPREVIR [Suspect]
     Indication: HEPATITIS C
     Dosage: 800 MG, TID
     Route: 048
     Dates: start: 20140102, end: 20140313
  2. PEGINTRON [Suspect]
     Indication: HEPATITIS C
     Dosage: 120 MICROGRAM, QW
     Dates: start: 20131205, end: 20140313
  3. REBETOL [Suspect]
     Indication: HEPATITIS C
     Dosage: 1200 MG DAILY
     Route: 048
     Dates: start: 20131205, end: 20140117
  4. REBETOL [Suspect]
     Dosage: 600 MG DAILY
     Route: 048
     Dates: start: 20140118, end: 20140313
  5. L-THYROXIN [Concomitant]
     Indication: THYROIDECTOMY
     Dosage: 150 MICROGRAM, QD (EXCEPT FRIDAY)
     Route: 048
     Dates: start: 20130906
  6. DAFALGAN [Concomitant]
     Indication: ARTHRALGIA
     Dosage: 500 MG, PRN
     Route: 048
  7. BIOCONDIL [Concomitant]
     Indication: RHEUMATIC DISORDER
     Dosage: 2 SACHETS, QD
     Route: 048
     Dates: start: 201212
  8. INDAPAMIDE (+) PERINDOPRIL ERBUMINE [Concomitant]
     Dosage: 4/1.25 MG DAILY
     Dates: start: 20130516

REACTIONS (5)
  - Pulmonary arterial hypertension [Recovered/Resolved]
  - Tricuspid valve incompetence [Recovered/Resolved]
  - Oedema peripheral [Recovered/Resolved]
  - Anaemia [Recovered/Resolved]
  - Diarrhoea [Recovered/Resolved]
